FAERS Safety Report 8823126 (Version 1)
Quarter: 2012Q4

REPORT INFORMATION
  Report Type: 
  Country: US (occurrence: US)
  Receive Date: 20121003
  Receipt Date: 20121003
  Transmission Date: 20130627
  Serious: No
  Sender: FDA-Public Use
  Company Number: US-BAYER-2012-098794

PATIENT
  Sex: Male

DRUGS (3)
  1. STAXYN (FDT/ODT) [Suspect]
     Indication: PRODUCT USED FOR UNKNOWN INDICATION
     Dosage: 10 mg, UNK
     Route: 048
  2. STAXYN (FDT/ODT) [Suspect]
     Indication: PRODUCT USED FOR UNKNOWN INDICATION
     Dosage: 10 mg, UNK
     Route: 048
  3. TESTOSTERONE [Concomitant]

REACTIONS (1)
  - Drug ineffective [Unknown]
